FAERS Safety Report 11785043 (Version 1)
Quarter: 2015Q4

REPORT INFORMATION
  Report Type: Spontaneous
  Country: US (occurrence: None)
  Receive Date: 20151124
  Receipt Date: 20151124
  Transmission Date: 20160305
  Serious: Yes (Other)
  Sender: FDA-Public Use
  Company Number: US-JNJFOC-20150904429

PATIENT
  Sex: Male

DRUGS (1)
  1. LISTERINE POCKETPAK [Suspect]
     Active Substance: EUCALYPTOL\MENTHOL\METHYL SALICYLATE\THYMOL
     Indication: BREATH ODOUR
     Route: 048

REACTIONS (4)
  - Drug dependence [None]
  - Inappropriate schedule of drug administration [None]
  - Product quality issue [None]
  - Drug effect incomplete [None]
